FAERS Safety Report 12574289 (Version 1)
Quarter: 2016Q3

REPORT INFORMATION
  Report Type: Spontaneous
  Country: US (occurrence: US)
  Receive Date: 20160720
  Receipt Date: 20160720
  Transmission Date: 20161109
  Serious: No
  Sender: FDA-Public Use
  Company Number: US-TEVA-671758USA

PATIENT
  Age: 31 Year
  Sex: Male

DRUGS (1)
  1. ZECUITY [Suspect]
     Active Substance: SUMATRIPTAN SUCCINATE
     Indication: MIGRAINE
     Route: 062
     Dates: start: 20160610, end: 20160610

REACTIONS (8)
  - Application site erythema [Recovered/Resolved]
  - Application site inflammation [Unknown]
  - Application site pruritus [Recovered/Resolved]
  - Product leakage [Unknown]
  - Application site exfoliation [Unknown]
  - Application site pain [Recovered/Resolved]
  - Product adhesion issue [Unknown]
  - Incorrect drug administration duration [Unknown]

NARRATIVE: CASE EVENT DATE: 20160610
